FAERS Safety Report 10039159 (Version 5)
Quarter: 2014Q2

REPORT INFORMATION
  Report Type: Report from Study
  Country: US (occurrence: US)
  Receive Date: 20140326
  Receipt Date: 20140607
  Transmission Date: 20141212
  Serious: Yes (Other)
  Sender: FDA-Public Use
  Company Number: PHEH2014US005754

PATIENT
  Age: 82 Year
  Sex: Male
  Weight: 99.79 kg

DRUGS (15)
  1. EXELON PATCH [Suspect]
     Indication: DEMENTIA ALZHEIMER^S TYPE
     Dosage: 9.5 MG, QD
     Route: 062
     Dates: start: 20130315
  2. AGGRENOX [Concomitant]
     Dosage: UNK UKN, UNK
  3. B12-VITAMIIN [Concomitant]
     Dosage: UNK UKN, UNK
  4. CARVEDILOL [Concomitant]
     Dosage: UNK UKN, UNK
  5. FLUNISOLIDE [Concomitant]
     Dosage: UNK UKN, UNK
  6. GABAPENTIN [Concomitant]
     Dosage: UNK UKN, UNK
     Dates: end: 20140112
  7. HYDROCHLOROTHIAZIDE [Concomitant]
     Dosage: UNK UKN, UNK
  8. LOSARTAN [Concomitant]
     Dosage: UNK UKN, UNK
  9. MULTI-VIT [Concomitant]
     Dosage: UNK UKN, UNK
  10. NAMENDA [Concomitant]
     Dosage: UNK UKN, UNK
  11. OMEPRAZOLE [Concomitant]
     Dosage: UNK UKN, UNK
  12. POTASSIUM [Concomitant]
     Dosage: UNK UKN, UNK
  13. ZIMVASTIN [Concomitant]
     Dosage: UNK UKN, UNK
  14. ARICEPT [Concomitant]
     Dosage: 24 MG, UNK
  15. NYSTATIN [Concomitant]
     Dosage: UNK UKN, UNK

REACTIONS (11)
  - Herpes zoster [Recovered/Resolved]
  - Swelling [Unknown]
  - Malaise [Unknown]
  - Application site urticaria [Not Recovered/Not Resolved]
  - Abdominal discomfort [Unknown]
  - Application site discolouration [Unknown]
  - Application site pruritus [Not Recovered/Not Resolved]
  - Application site pain [Unknown]
  - Anxiety [Unknown]
  - Rash [Unknown]
  - Hypersensitivity [Unknown]
